FAERS Safety Report 5508992-4 (Version None)
Quarter: 2007Q4

REPORT INFORMATION
  Report Type: 
  Country: None (occurrence: None)
  Receive Date: 20071107
  Receipt Date: 20071030
  Transmission Date: 20080405
  Serious: Yes (Life-Threatening)
  Sender: FDA-Public Use
  Company Number: JP-SANOFI-SYNTHELABO-A01200712477

PATIENT
  Sex: Male

DRUGS (3)
  1. ISOVORIN [Suspect]
     Indication: LARGE INTESTINE CARCINOMA
     Dosage: 175 MG
     Route: 041
  2. FLUOROURACIL [Suspect]
     Indication: LARGE INTESTINE CARCINOMA
     Dosage: DOSAGE UNKNOWN IN BOLUS THEN 1750MG/BODY AS CONTINUOUS INFUSION ON DAY 1 AND 2
     Route: 041
  3. ELPLAT [Suspect]
     Indication: LARGE INTESTINE CARCINOMA
     Dosage: UNK
     Route: 041

REACTIONS (1)
  - PANCYTOPENIA [None]
